FAERS Safety Report 12638840 (Version 1)
Quarter: 2016Q3

REPORT INFORMATION
  Report Type: Spontaneous
  Country: US (occurrence: US)
  Receive Date: 20160809
  Receipt Date: 20160809
  Transmission Date: 20161109
  Serious: Yes (Other)
  Sender: FDA-Public Use
  Company Number: US-GILEAD-2016-0223935

PATIENT
  Age: 60 Year
  Sex: Female
  Weight: 90.7 kg

DRUGS (1)
  1. HARVONI [Suspect]
     Active Substance: LEDIPASVIR\SOFOSBUVIR
     Indication: HEPATITIS C
     Dosage: UNK
     Route: 065
     Dates: start: 2014

REACTIONS (4)
  - Hepatitis C [Unknown]
  - Treatment failure [Unknown]
  - Viral mutation identified [Unknown]
  - Drug ineffective [Unknown]
